FAERS Safety Report 8479484-8 (Version None)
Quarter: 2012Q2

REPORT INFORMATION
  Report Type: 
  Country: None (occurrence: None)
  Receive Date: 20120629
  Receipt Date: 20120621
  Transmission Date: 20120825
  Serious: Yes (Hospitalization)
  Sender: FDA-Public Use
  Company Number: US-US-EMD SERONO, INC.-7134694

PATIENT
  Sex: Female
  Weight: 96 kg

DRUGS (5)
  1. ADDERALL XR 10 [Concomitant]
     Indication: FATIGUE
  2. CYMBALTA [Concomitant]
     Indication: DEPRESSION
  3. BUPROPION HCL [Concomitant]
     Indication: DEPRESSION
  4. LEXAPRO [Concomitant]
     Indication: DEPRESSION
  5. REBIF [Suspect]
     Indication: MULTIPLE SCLEROSIS
     Route: 058
     Dates: start: 20111121, end: 20120305

REACTIONS (6)
  - CENTRAL NERVOUS SYSTEM LESION [None]
  - POST PROCEDURAL COMPLICATION [None]
  - INJECTION SITE REACTION [None]
  - INTESTINAL OBSTRUCTION [None]
  - INJECTION SITE PAIN [None]
  - INFLUENZA LIKE ILLNESS [None]
